FAERS Safety Report 4550034-1 (Version None)
Quarter: 2005Q1

REPORT INFORMATION
  Report Type: 
  Country: None (occurrence: None)
  Receive Date: 20050107
  Receipt Date: 20041229
  Transmission Date: 20050727
  Serious: Yes (Hospitalization, Other)
  Sender: FDA-Public Use
  Company Number: KII-2004-0014455

PATIENT
  Age: 30 Year
  Sex: Male

DRUGS (5)
  1. OXYCODONE HCL [Suspect]
     Indication: PAIN
     Dosage: UNK, SEE TEXT, ORAL
     Route: 048
  2. METHADONE (METHADONE) [Suspect]
     Indication: PAIN
     Dosage: UNK, SEE TEXT, ORAL
     Route: 048
  3. BENZODIAZEPINE DERIVATIVES [Suspect]
     Dosage: UNK
     Route: 065
  4. ACETYLSALICYLIC ACID (ACETYLSALICYLIC ACID) [Suspect]
     Dosage: UNK
     Route: 065
  5. ACETAMINOPHEN [Suspect]
     Dosage: UNK
     Route: 065

REACTIONS (12)
  - BLOOD CREATINE INCREASED [None]
  - BLOOD POTASSIUM ABNORMAL [None]
  - BLOOD POTASSIUM INCREASED [None]
  - DRUG SCREEN POSITIVE [None]
  - HYPERHIDROSIS [None]
  - INADEQUATE ANALGESIA [None]
  - MEDICATION ERROR [None]
  - MULTIPLE DRUG OVERDOSE [None]
  - RHABDOMYOLYSIS [None]
  - SOMNOLENCE [None]
  - TACHYCARDIA [None]
  - THIRST [None]
